FAERS Safety Report 9332070 (Version 1)
Quarter: 2013Q2

REPORT INFORMATION
  Report Type: Spontaneous
  Country: US (occurrence: US)
  Receive Date: 20130605
  Receipt Date: 20130605
  Transmission Date: 20140414
  Serious: No
  Sender: FDA-Public Use
  Company Number: US-ASTRAZENECA-2013SE34821

PATIENT
  Age: 36 Year
  Sex: Female

DRUGS (5)
  1. SEROQUEL XR [Suspect]
     Route: 048
  2. SEROQUEL XR [Suspect]
     Route: 048
  3. XANAX [Concomitant]
  4. ZOLOFT [Concomitant]
     Dosage: 200MG
  5. ZYPREXA [Concomitant]

REACTIONS (2)
  - Retrograde amnesia [Unknown]
  - Feeling drunk [Unknown]
